FAERS Safety Report 4500564-3 (Version None)
Quarter: 2004Q4

REPORT INFORMATION
  Report Type: 
  Country: None (occurrence: None)
  Receive Date: 20041115
  Receipt Date: 20041103
  Transmission Date: 20050328
  Serious: Yes (Hospitalization)
  Sender: FDA-Public Use
  Company Number: FR-JNJFOC-20041101418

PATIENT
  Age: 58 Year
  Sex: Female
  Weight: 96 kg

DRUGS (5)
  1. REMICADE [Suspect]
     Dosage: THIS WAS THE 7TH INFUSION
     Route: 042
  2. REMICADE [Suspect]
     Indication: ANKYLOSING SPONDYLITIS
     Dosage: 6 INFUSIONS ADMINISTERED
     Route: 042
  3. APRANAX [Concomitant]
     Indication: ANKYLOSING SPONDYLITIS
     Route: 049
  4. OMEPRAZOLE [Concomitant]
     Route: 049
  5. EFFEXOR [Concomitant]
     Route: 049

REACTIONS (3)
  - HEADACHE [None]
  - MUSCULOSKELETAL STIFFNESS [None]
  - PHOTOPHOBIA [None]
